FAERS Safety Report 8228402 (Version 6)
Quarter: 2014Q2

REPORT INFORMATION
  Report Type: Spontaneous
  Country: US (occurrence: US)
  Receive Date: 20111104
  Receipt Date: 20140411
  Transmission Date: 20141212
  Serious: Yes (Other)
  Sender: FDA-Public Use
  Company Number: US-ASTRAZENECA-2011SE64728

PATIENT
  Age: 62 Year
  Sex: Male

DRUGS (16)
  1. NEXIUM [Suspect]
     Indication: GASTROOESOPHAGEAL REFLUX DISEASE
     Route: 048
  2. NEXIUM [Suspect]
     Indication: OESOPHAGEAL ULCER
     Route: 048
  3. NEXIUM [Suspect]
     Indication: GASTRIC ULCER
     Route: 048
  4. NEXIUM [Suspect]
     Indication: GASTROOESOPHAGEAL REFLUX DISEASE
     Dosage: TWO TIMES A DAY
     Route: 048
  5. NEXIUM [Suspect]
     Indication: OESOPHAGEAL ULCER
     Dosage: TWO TIMES A DAY
     Route: 048
  6. NEXIUM [Suspect]
     Indication: GASTRIC ULCER
     Dosage: TWO TIMES A DAY
     Route: 048
  7. NEXIUM [Suspect]
     Indication: GASTROOESOPHAGEAL REFLUX DISEASE
     Route: 048
  8. NEXIUM [Suspect]
     Indication: OESOPHAGEAL ULCER
     Route: 048
  9. NEXIUM [Suspect]
     Indication: GASTRIC ULCER
     Route: 048
  10. NEXIUM [Suspect]
     Indication: GASTROOESOPHAGEAL REFLUX DISEASE
     Route: 048
  11. NEXIUM [Suspect]
     Indication: OESOPHAGEAL ULCER
     Route: 048
  12. NEXIUM [Suspect]
     Indication: GASTRIC ULCER
     Route: 048
  13. PRILOSEC [Suspect]
     Route: 048
  14. PRILOSEC OTC [Suspect]
     Route: 048
  15. ZANTAC [Concomitant]
  16. XANAX [Concomitant]

REACTIONS (16)
  - Cerebrovascular accident [Unknown]
  - Renal cancer [Unknown]
  - Throat cancer [Unknown]
  - Myocardial infarction [Unknown]
  - Oesophageal ulcer [Unknown]
  - Gastric ulcer [Unknown]
  - Arterial occlusive disease [Unknown]
  - Type 2 diabetes mellitus [Unknown]
  - Back pain [Unknown]
  - Hiatus hernia [Unknown]
  - Thinking abnormal [Unknown]
  - Anxiety [Unknown]
  - Malaise [Unknown]
  - Depression [Unknown]
  - Intentional product misuse [Unknown]
  - Drug ineffective [Unknown]
